FAERS Safety Report 4997104-1 (Version None)
Quarter: 2006Q2

REPORT INFORMATION
  Report Type: 
  Country: None (occurrence: None)
  Receive Date: 20060509
  Receipt Date: 20060427
  Transmission Date: 20061013
  Serious: Yes (Hospitalization, Other)
  Sender: FDA-Public Use
  Company Number: FR-BRISTOL-MYERS SQUIBB COMPANY-13360177

PATIENT
  Age: 40 Year
  Sex: Male
  Weight: 68 kg

DRUGS (9)
  1. VIDEX [Suspect]
     Indication: HIV INFECTION
     Dosage: STOPPED AUG-2005, RESTARTED 04-SEP-2005 REMAINED ONGOING.
     Route: 048
     Dates: start: 20050301
  2. FUZEON [Suspect]
     Dosage: STOPPED AUG-2005, RESTARTED 02-SEP-2005 STOPPED 27-OCT-2005, RESTARTED 10-JAN-2006
     Dates: start: 20050301
  3. KIVEXA [Suspect]
     Dates: start: 20060110
  4. DARUNAVIR [Suspect]
     Dates: start: 20060110
  5. ATAZANAVIR [Concomitant]
     Dates: start: 20051027, end: 20060110
  6. LOPINAVIR + RITONAVIR [Concomitant]
     Dates: start: 20051027, end: 20060110
  7. NORVIR [Concomitant]
     Dosage: STOPPED AUG-2005, RESTARED 04-SEP-2005 TO 27-OCT-2005, RESTARTED 10-JAN-2006
     Dates: start: 20050301
  8. APTIVUS [Concomitant]
     Dosage: MAR-05 TO AUG-05 (500MGX2 INCREASED MAR-2005 TO 750 MGX2), RESTARTED 9/04/05 AT 500MGX2 TO 27/10/05
     Dates: start: 20050301, end: 20051027
  9. ZIAGEN [Concomitant]
     Dosage: STOPPED AUG-2005, RESTARTED 02-SEP-2005
     Dates: start: 20050301

REACTIONS (5)
  - BLOOD CREATINE PHOSPHOKINASE INCREASED [None]
  - CYTOLYTIC HEPATITIS [None]
  - FOLLICULITIS [None]
  - IMMUNE RECONSTITUTION SYNDROME [None]
  - RHABDOMYOLYSIS [None]
